FAERS Safety Report 9330169 (Version 2)
Quarter: 2013Q2

REPORT INFORMATION
  Report Type: Spontaneous
  Country: JP (occurrence: JP)
  Receive Date: 20130604
  Receipt Date: 20130621
  Transmission Date: 20140414
  Serious: Yes (Hospitalization, Other)
  Sender: FDA-Public Use
  Company Number: JP-PFIZER INC-2013163526

PATIENT
  Age: 60 Year
  Sex: Male
  Weight: 61 kg

DRUGS (9)
  1. ZITHROMAC [Suspect]
     Indication: PNEUMONIA MYCOPLASMAL
     Dosage: 500 MG, 1X/DAY
     Route: 041
     Dates: start: 20130408, end: 20130410
  2. ZITHROMAC [Suspect]
     Indication: PNEUMONIA
     Dosage: 500 MG, 1X/DAY
     Route: 041
     Dates: start: 20130419, end: 20130422
  3. UNASYN S [Concomitant]
     Indication: PNEUMONIA MYCOPLASMAL
     Dosage: 1.5 G, 2X/DAY
     Route: 042
     Dates: start: 20130329, end: 20130407
  4. DICLOFENAC SODIUM [Concomitant]
     Indication: PNEUMONIA
     Dosage: 1 DF, AS NEEDED
     Route: 054
  5. CLARITH [Concomitant]
     Indication: PNEUMONIA
     Dosage: 200 MG, 2X/DAY
     Route: 048
     Dates: start: 20130401, end: 20130407
  6. ZESTROMIN [Concomitant]
     Indication: INSOMNIA
     Dosage: 1 DF, 1X/DAY
     Route: 048
     Dates: start: 20130410, end: 20130416
  7. BISOLVON [Concomitant]
     Indication: PNEUMONIA
     Dosage: UNK
     Route: 055
     Dates: start: 20130419, end: 20130422
  8. CALONAL [Concomitant]
     Indication: PNEUMONIA
     Dosage: 2 DF, AS NEEDED
     Route: 048
     Dates: start: 20130421
  9. HALCION [Concomitant]
     Indication: INSOMNIA
     Dosage: 1 DF, A DAY AS NEEDED
     Route: 048

REACTIONS (1)
  - Interstitial lung disease [Recovering/Resolving]
